FAERS Safety Report 7378328-5 (Version None)
Quarter: 2011Q1

REPORT INFORMATION
  Report Type: 
  Country: None (occurrence: None)
  Receive Date: 20110323
  Receipt Date: 20110323
  Transmission Date: 20110831
  Serious: Yes (Hospitalization)
  Sender: FDA-Public Use
  Company Number: None

PATIENT
  Age: 33 Year
  Sex: Male
  Weight: 81.5 kg

DRUGS (1)
  1. TRALI [Suspect]
     Indication: CARDIOMYOPATHY
     Dosage: 209ML, APHERESIS PLATELET  ONCE
     Dates: start: 20110207, end: 20110207

REACTIONS (7)
  - TACHYCARDIA [None]
  - LUNG INFILTRATION [None]
  - CREPITATIONS [None]
  - DYSPNOEA [None]
  - COUGH [None]
  - TRANSFUSION-RELATED ACUTE LUNG INJURY [None]
  - PALPITATIONS [None]
